FAERS Safety Report 5130053-7 (Version None)
Quarter: 2006Q4

REPORT INFORMATION
  Report Type: 
  Country: None (occurrence: None)
  Receive Date: 20061013
  Receipt Date: 20061003
  Transmission Date: 20070319
  Serious: Yes (Hospitalization)
  Sender: FDA-Public Use
  Company Number: 2006110824

PATIENT
  Age: 81 Year
  Sex: Male

DRUGS (9)
  1. NITROGLYCERIN [Suspect]
     Dosage: 10 MG (10 MG, 1 IN 1 D)
  2. ACETYLSALICYLATE LYSINE (ACETYLSALICYLATE LYSINE) [Suspect]
     Dosage: 75 MG (75 MG, 1 IN 1 D)
  3. DILTIAZEM HYDROCHLORIDE [Suspect]
     Dosage: 300 MG (300 MG, 1 IN 1 D)
  4. NEXIUM [Suspect]
     Dosage: 20 MG (20 MG, 1 IN 1 D)
  5. LASIX [Suspect]
  6. BACTRIM DS [Suspect]
     Indication: NOCARDIOSIS
     Dates: start: 20060110, end: 20060805
  7. TRANXENE [Concomitant]
  8. XATRAL (ALFUZOSIN) [Concomitant]
  9. PERMIXON (SERENOA REPENS) [Concomitant]

REACTIONS (5)
  - AGRANULOCYTOSIS [None]
  - DYSPNOEA [None]
  - NEUTROPHIL COUNT INCREASED [None]
  - PSEUDOMONAL SEPSIS [None]
  - RESPIRATORY FAILURE [None]
